FAERS Safety Report 9186824 (Version 1)
Quarter: 2012Q4

REPORT INFORMATION
  Report Type: 
  Country: GB (occurrence: GB)
  Receive Date: 20121102
  Receipt Date: 20121102
  Transmission Date: 20130627
  Serious: Yes (Hospitalization, Other)
  Sender: FDA-Public Use
  Company Number: GB-GENZYME-CLOF-1002250

PATIENT
  Age: 59 None
  Sex: Male
  Weight: 77.8 kg

DRUGS (17)
  1. EVOLTRA [Suspect]
     Indication: ACUTE MYELOID LEUKAEMIA
     Dosage: 38 mg  (20 mg/m2), UNK, days 1,2,3,4 and 5
     Route: 065
     Dates: start: 20120518
  2. EVOLTRA [Suspect]
     Dosage: UNK
     Route: 065
     Dates: start: 20120622, end: 20120626
  3. DAUNORUBICIN [Suspect]
     Indication: ACUTE MYELOID LEUKAEMIA
     Dosage: 175 mg (90 mg/m2), UNK, days 1,3 and 5
     Route: 065
     Dates: start: 20120518
  4. DAUNORUBICIN [Suspect]
     Dosage: 95 mg (50 mg/m2),  UNK, days 1,3 and 5
     Route: 065
     Dates: start: 20120622, end: 20120626
  5. ARA-C [Suspect]
     Indication: ACUTE MYELOID LEUKAEMIA
     Dosage: 95 mg (100mg/m2), UNK, days 1,3 and 5
     Route: 065
     Dates: start: 20120518, end: 20120626
  6. CIPROFLOXACIN [Suspect]
     Indication: PRODUCT USED FOR UNKNOWN INDICATION
     Dosage: 500 mg, UNK
     Route: 065
     Dates: start: 20120702, end: 20120719
  7. CITALOPRAM [Concomitant]
     Indication: PRODUCT USED FOR UNKNOWN INDICATION
     Dosage: 20 mg, UNK
     Route: 065
     Dates: start: 2012
  8. LANSOPRAZOLE [Concomitant]
     Indication: PRODUCT USED FOR UNKNOWN INDICATION
     Dosage: 30 mg, UNK
     Route: 065
     Dates: start: 2012, end: 20120726
  9. RAMIPRIL [Concomitant]
     Indication: PRODUCT USED FOR UNKNOWN INDICATION
     Dosage: 10 mg, UNK
     Route: 065
     Dates: start: 2012
  10. DOMPERIDONE [Concomitant]
     Indication: PRODUCT USED FOR UNKNOWN INDICATION
     Dosage: 10 mg, UNK
     Route: 065
     Dates: start: 2012, end: 20120726
  11. METRONIDAZOLE [Concomitant]
     Indication: PRODUCT USED FOR UNKNOWN INDICATION
     Dosage: 400 mg, tid
     Route: 065
     Dates: start: 20120711, end: 20120719
  12. CALCICHEW [Concomitant]
     Indication: PRODUCT USED FOR UNKNOWN INDICATION
     Dosage: 1 DF, bid
     Route: 065
     Dates: start: 20120712, end: 20120715
  13. CYCLIZINE [Concomitant]
     Indication: PRODUCT USED FOR UNKNOWN INDICATION
     Dosage: UNK; prn
     Route: 065
     Dates: start: 20120711
  14. PARACETAMOL [Concomitant]
     Indication: PRODUCT USED FOR UNKNOWN INDICATION
     Dosage: prn
     Route: 065
     Dates: start: 2012
  15. SANDO K [Concomitant]
     Indication: PRODUCT USED FOR UNKNOWN INDICATION
     Dosage: tid
     Route: 065
     Dates: start: 20120713, end: 20120716
  16. MAGNESIUM GLYCEROPHOSPHATE [Concomitant]
     Indication: PRODUCT USED FOR UNKNOWN INDICATION
     Dosage: tid
     Route: 065
     Dates: start: 20120716, end: 20120720
  17. AMILORIDE [Concomitant]
     Indication: PRODUCT USED FOR UNKNOWN INDICATION
     Dosage: 10 mg, qd
     Route: 065
     Dates: start: 20120716

REACTIONS (3)
  - Rectal haemorrhage [Unknown]
  - Diarrhoea [Recovered/Resolved]
  - Clostridial infection [Recovered/Resolved]
